FAERS Safety Report 7471629-1 (Version None)
Quarter: 2011Q2

REPORT INFORMATION
  Report Type: 
  Country: None (occurrence: None)
  Receive Date: 20110502
  Receipt Date: 20110420
  Transmission Date: 20111010
  Serious: Yes (Other)
  Sender: FDA-Public Use
  Company Number: 2011-1267

PATIENT
  Age: 64 Year
  Sex: Female

DRUGS (1)
  1. APO-GO AMPOULES (APO-GO) (APOMORPHINE HYDROCHLORIDE) (APOMORPHINE HYDR [Suspect]
     Indication: PRODUCT USED FOR UNKNOWN INDICATION
     Dosage: 14 HOURS WITH BASAL DOSE OF 0.9MG/H AND BOLUS OF 0.81ML/H (NOT REPORTED, 14 IN 24 HR), SUBCUTANEOUS
     Route: 058
     Dates: start: 20090712

REACTIONS (1)
  - PELVIC FLOOR DYSSYNERGIA [None]
